FAERS Safety Report 18422173 (Version 1)
Quarter: 2020Q4

REPORT INFORMATION
  Report Type: Spontaneous
  Country: US (occurrence: US)
  Receive Date: 20201023
  Receipt Date: 20201023
  Transmission Date: 20210114
  Serious: No
  Sender: FDA-Public Use
  Company Number: US-TEVA-2020-US-1841487

PATIENT
  Age: 84 Year
  Sex: Female

DRUGS (3)
  1. GABAPENTIN. [Suspect]
     Active Substance: GABAPENTIN
     Indication: ARTHRALGIA
  2. GABAPENTIN. [Suspect]
     Active Substance: GABAPENTIN
     Indication: PAIN IN EXTREMITY
     Dosage: 1200 MILLIGRAM DAILY; FOUR 100 MG CAPSULES THREE TIMES A DAY
     Route: 065
  3. GABAPENTIN. [Suspect]
     Active Substance: GABAPENTIN
     Indication: NEURALGIA
     Dosage: 1200 MILLIGRAM DAILY;
     Route: 065

REACTIONS (6)
  - Product use in unapproved indication [Unknown]
  - Diarrhoea [Recovered/Resolved]
  - Anal haemorrhage [Unknown]
  - Faeces discoloured [Unknown]
  - Product dose omission issue [Unknown]
  - Off label use [Unknown]
